FAERS Safety Report 7010853-9 (Version None)
Quarter: 2010Q3

REPORT INFORMATION
  Report Type: 
  Country: None (occurrence: None)
  Receive Date: 20100923
  Receipt Date: 20100923
  Transmission Date: 20110219
  Serious: No
  Sender: FDA-Public Use
  Company Number: None

PATIENT
  Sex: Female
  Weight: 52.1637 kg

DRUGS (3)
  1. LEVAQUIN [Suspect]
     Indication: SINUSITIS
     Dosage: 500 MG 1 PER DAY FOR 10 D PO
     Route: 048
     Dates: start: 20080603, end: 20080613
  2. LEVOTHYROXINE SODIUM [Concomitant]
  3. NASONEX [Concomitant]

REACTIONS (4)
  - ABASIA [None]
  - ARTHROPATHY [None]
  - BLOOD IRON INCREASED [None]
  - TENDON PAIN [None]
